FAERS Safety Report 9677229 (Version 1)
Quarter: 2013Q4

REPORT INFORMATION
  Report Type: Spontaneous
  Country: US (occurrence: US)
  Receive Date: 20131108
  Receipt Date: 20131108
  Transmission Date: 20140711
  Serious: No
  Sender: FDA-Public Use
  Company Number: US-CUBIST PHARMACEUTICAL, INC.-2013CBST000708

PATIENT
  Sex: 0

DRUGS (2)
  1. CUBICIN [Suspect]
     Indication: STAPHYLOCOCCAL INFECTION
     Dosage: 6 MG/KG (10 ML) INFUSION, Q24H
     Route: 042
     Dates: start: 20130817
  2. CUBICIN [Suspect]
     Dosage: 420 MG (10 ML) INFUSION, Q24H
     Route: 065
     Dates: start: 20130817

REACTIONS (1)
  - Blood creatine phosphokinase increased [Not Recovered/Not Resolved]
